FAERS Safety Report 4388855-0 (Version None)
Quarter: 2004Q3

REPORT INFORMATION
  Report Type: 
  Country: None (occurrence: None)
  Receive Date: 20040701
  Receipt Date: 20040701
  Transmission Date: 20050211
  Serious: Yes (Life-Threatening, Hospitalization, Disabling)
  Sender: FDA-Public Use
  Company Number: None

PATIENT
  Age: 44 Year
  Sex: Female
  Weight: 61.2356 kg

DRUGS (1)
  1. NAVANE [Suspect]
     Indication: SCHIZOPHRENIA
     Dosage: 10 MG /ONCE PER DAY/EVENINGS
     Dates: start: 19790101, end: 20030101

REACTIONS (13)
  - AGITATION [None]
  - AMNESIA [None]
  - ANXIETY [None]
  - ARTHRALGIA [None]
  - CARDIAC DISORDER [None]
  - CHEST PAIN [None]
  - CONFUSIONAL STATE [None]
  - HEART INJURY [None]
  - HEPATOCELLULAR DAMAGE [None]
  - HYPOTENSION [None]
  - LUNG INJURY [None]
  - NEUROLEPTIC MALIGNANT SYNDROME [None]
  - RESPIRATORY DISORDER [None]
